FAERS Safety Report 7594468 (Version 3)
Quarter: 2013Q4

REPORT INFORMATION
  Report Type: Spontaneous
  Country: US (occurrence: US)
  Receive Date: 20100920
  Receipt Date: 20131223
  Transmission Date: 20140711
  Serious: Yes (Other)
  Sender: FDA-Public Use
  Company Number: US-BAYER-201033787NA

PATIENT
  Age: 18 Year
  Sex: Female
  Weight: 77 kg

DRUGS (3)
  1. YASMIN [Suspect]
     Indication: MENSTRUAL CYCLE MANAGEMENT
     Route: 048
     Dates: start: 200408, end: 200507
  2. YASMIN [Suspect]
     Indication: ORAL CONTRACEPTION
  3. YASMIN [Suspect]
     Indication: DYSMENORRHOEA

REACTIONS (5)
  - Cholelithiasis [None]
  - Functional gastrointestinal disorder [None]
  - Pain [None]
  - Cholecystitis chronic [None]
  - Off label use [None]
